FAERS Safety Report 22112422 (Version 1)
Quarter: 2023Q1

REPORT INFORMATION
  Report Type: Spontaneous
  Country: US (occurrence: US)
  Receive Date: 20230319
  Receipt Date: 20230319
  Transmission Date: 20230418
  Serious: Yes (Hospitalization)
  Sender: FDA-Public Use
  Company Number: US-BAYER-2023A034351

PATIENT
  Age: 65 Year
  Sex: Male

DRUGS (1)
  1. RIVAROXABAN [Suspect]
     Active Substance: RIVAROXABAN
     Indication: Atrial fibrillation
     Route: 048

REACTIONS (5)
  - Cerebral vasoconstriction [Unknown]
  - Infective aneurysm [Unknown]
  - Haemorrhage intracranial [Unknown]
  - Subarachnoid haemorrhage [Unknown]
  - Cerebral haematoma [Unknown]
